FAERS Safety Report 11012041 (Version 2)
Quarter: 2015Q2

REPORT INFORMATION
  Report Type: Spontaneous
  Country: US (occurrence: US)
  Receive Date: 20150410
  Receipt Date: 20150525
  Transmission Date: 20150821
  Serious: No
  Sender: FDA-Public Use
  Company Number: US-JNJFOC-20130209133

PATIENT
  Sex: Male

DRUGS (3)
  1. PREDNISONE. [Concomitant]
     Active Substance: PREDNISONE
     Route: 048
  2. REMICADE [Suspect]
     Active Substance: INFLIXIMAB
     Indication: CROHN^S DISEASE
     Dosage: FIRST INFUSION OF INFLIXIMAB
     Route: 042
     Dates: start: 20130212
  3. LOVENOX [Concomitant]
     Active Substance: ENOXAPARIN SODIUM
     Route: 058

REACTIONS (5)
  - Feeling jittery [Not Recovered/Not Resolved]
  - Restlessness [Not Recovered/Not Resolved]
  - Tremor [Not Recovered/Not Resolved]
  - Anxiety [Not Recovered/Not Resolved]
  - Disturbance in attention [Not Recovered/Not Resolved]

NARRATIVE: CASE EVENT DATE: 20130212
